FAERS Safety Report 6827127-9 (Version None)
Quarter: 2010Q3

REPORT INFORMATION
  Report Type: 
  Country: None (occurrence: None)
  Receive Date: 20100709
  Receipt Date: 20100629
  Transmission Date: 20110219
  Serious: Yes (Death, Hospitalization)
  Sender: FDA-Public Use
  Company Number: GB-JNJFOC-20100501444

PATIENT
  Sex: Female

DRUGS (2)
  1. ACETAMINOPHEN [Suspect]
  2. ACETAMINOPHEN [Suspect]
     Indication: PRODUCT USED FOR UNKNOWN INDICATION

REACTIONS (6)
  - ALANINE AMINOTRANSFERASE INCREASED [None]
  - ENCEPHALOPATHY [None]
  - HAEMORRHAGE [None]
  - INFECTION [None]
  - NAUSEA [None]
  - OVERDOSE [None]
